FAERS Safety Report 6716988-X (Version None)
Quarter: 2010Q3

REPORT INFORMATION
  Report Type: 
  Country: None (occurrence: None)
  Receive Date: 20100510
  Receipt Date: 20100510
  Transmission Date: 20110219
  Serious: Yes (Hospitalization)
  Sender: FDA-Public Use
  Company Number: None

PATIENT
  Age: 1 Year
  Sex: Male
  Weight: 9.0719 kg

DRUGS (4)
  1. CONCENTRATED TYLENOL INFANT DROPS [Suspect]
     Indication: PYREXIA
     Dosage: 1.3ML EVERY 4 HOURS PO
     Route: 048
     Dates: start: 20100304, end: 20100306
  2. CONCENTRATED TYLENOL INFANT DROPS [Suspect]
     Indication: TEETHING
     Dosage: 1.3ML EVERY 4 HOURS PO
     Route: 048
     Dates: start: 20100304, end: 20100306
  3. CONCENTRATED MOTRIN INFANTS DROPS [Suspect]
     Indication: PYREXIA
     Dosage: 1.5 ML EVERY 6 HOURS PO
     Route: 048
     Dates: start: 20100304, end: 20100306
  4. CONCENTRATED MOTRIN INFANTS DROPS [Suspect]
     Indication: TEETHING
     Dosage: 1.5 ML EVERY 6 HOURS PO
     Route: 048
     Dates: start: 20100304, end: 20100306

REACTIONS (2)
  - FEBRILE CONVULSION [None]
  - PRODUCT QUALITY ISSUE [None]
